FAERS Safety Report 7351183 (Version 2)
Quarter: 2013Q4

REPORT INFORMATION
  Report Type: Spontaneous
  Country: US (occurrence: US)
  Receive Date: 20100412
  Receipt Date: 20131210
  Transmission Date: 20140711
  Serious: No
  Sender: FDA-Public Use
  Company Number: US-BIOGENIDEC-2010BI011261

PATIENT
  Sex: Male

DRUGS (3)
  1. TYSABRI [Suspect]
     Indication: MULTIPLE SCLEROSIS
     Route: 042
     Dates: start: 20070214, end: 20110223
  2. TYSABRI [Suspect]
     Indication: MULTIPLE SCLEROSIS
     Route: 042
     Dates: start: 20110504
  3. AVONEX [Concomitant]
     Route: 030
     Dates: start: 20070214

REACTIONS (7)
  - Motor dysfunction [Not Recovered/Not Resolved]
  - Cognitive disorder [Unknown]
  - Sensory loss [Unknown]
  - Vision blurred [Recovered/Resolved]
  - Hypoaesthesia [Unknown]
  - Stress [Not Recovered/Not Resolved]
  - Multiple sclerosis relapse [Not Recovered/Not Resolved]
